FAERS Safety Report 14146350 (Version 1)
Quarter: 2017Q4

REPORT INFORMATION
  Report Type: Report from Study
  Country: CN (occurrence: CN)
  Receive Date: 20171031
  Receipt Date: 20171031
  Transmission Date: 20180321
  Serious: Yes (Hospitalization, Other)
  Sender: FDA-Public Use
  Company Number: CN-ASTELLAS-2017US031343

PATIENT
  Sex: Female

DRUGS (1)
  1. ERLOTINIB [Suspect]
     Active Substance: ERLOTINIB
     Indication: NON-SMALL CELL LUNG CANCER
     Route: 048
     Dates: start: 20151009

REACTIONS (5)
  - Cerebral infarction [Recovering/Resolving]
  - Fall [Unknown]
  - Fracture [Recovering/Resolving]
  - Motion sickness [Unknown]
  - Movement disorder [Unknown]
